FAERS Safety Report 8558642-8 (Version None)
Quarter: 2012Q3

REPORT INFORMATION
  Report Type: 
  Country: None (occurrence: None)
  Receive Date: 20120801
  Receipt Date: 20120724
  Transmission Date: 20120928
  Serious: Yes (Death, Hospitalization)
  Sender: FDA-Public Use
  Company Number: US-OPTIMER-20110054

PATIENT

DRUGS (29)
  1. VANCOCIN HYDROCHLORIDE [Suspect]
     Dosage: 200 MG, QID
     Route: 048
     Dates: start: 20111105, end: 20111106
  2. VANCOCIN HYDROCHLORIDE [Suspect]
     Dosage: UNK
     Route: 065
     Dates: start: 20111116
  3. AFLURIA [Concomitant]
     Dosage: 0.5 ML ONCE
     Route: 030
  4. HUMALOG [Concomitant]
     Dosage: 2-10 UNITS 3 X DAY BEFORE MEALS
     Route: 058
  5. PRILOSEC [Concomitant]
     Dosage: 20 MG, UNK
  6. PHENERGAN HCL [Concomitant]
     Dosage: 25 MG/ML, 1 ML Q 6 H PRN
     Route: 042
  7. PROVENTIL [Concomitant]
     Indication: WHEEZING
     Dosage: 2.5 MG/3 ML (0.083%)
     Route: 055
  8. ATROVENT [Concomitant]
     Indication: DYSPNOEA
     Dosage: 0.02% SOLUTION, 2.5 ML BY NEB AS DIRECTED
     Route: 055
  9. SOLU-MEDROL [Concomitant]
     Indication: CROHN'S DISEASE
     Dosage: 125 MG/2ML, 2 ML BID
     Route: 042
  10. OSCAL 250+D [Concomitant]
     Dosage: 1 TAB 3 TIMES DAILY WITH MEALS
     Route: 048
  11. VITAMIN B-12 [Concomitant]
     Dosage: 1,000 MCG/ML EVERY MONTH X 1 YEAR
     Route: 030
  12. ADVAIR DISKUS 100/50 [Concomitant]
     Dosage: 1 PUFF  2 TIMES DAILY
     Route: 055
  13. LASIX [Concomitant]
     Indication: RENAL IMPAIRMENT
  14. FLORASTOR [Concomitant]
     Indication: CLOSTRIDIUM DIFFICILE COLITIS
     Dosage: 500 MG, BID
     Dates: start: 20111104
  15. PROTONIX [Concomitant]
     Dosage: 40 MG, UNK
     Route: 042
  16. VANCOCIN HYDROCHLORIDE [Suspect]
     Indication: CLOSTRIDIUM DIFFICILE COLITIS
     Dosage: 125 MG, QID
     Route: 048
     Dates: start: 20111102, end: 20111104
  17. NORCO [Concomitant]
     Indication: PAIN
     Dosage: 7.5-3.25 MG 1 TABLET TID PRN
     Route: 048
  18. ATROVENT [Concomitant]
     Indication: WHEEZING
  19. ROCEPHIN [Concomitant]
     Indication: CLOSTRIDIUM DIFFICILE COLITIS
     Dosage: UNK
     Dates: start: 20111101
  20. NOVOLIN R [Concomitant]
     Dosage: 2-10 UNITS AT BEDTIME
     Route: 058
  21. ZOFRAN [Concomitant]
     Dosage: 4 MG/2 ML, 2 ML Q 6 H PRN
     Route: 042
  22. RESTORIL [Concomitant]
     Indication: INSOMNIA
     Dosage: 15 MG, UNK
     Route: 048
  23. DIFICID [Suspect]
     Indication: CLOSTRIDIUM DIFFICILE COLITIS
     Dosage: 200 MG, BID
     Route: 048
     Dates: start: 20111105, end: 20111101
  24. DEXTROSE [Concomitant]
     Indication: BLOOD GLUCOSE DECREASED
     Dosage: 25 ML, PRN
     Route: 042
  25. MORPHINE SULFATE [Concomitant]
     Dosage: 2-4 MG Q 2 H PRN
     Route: 042
  26. PREDNISONE [Concomitant]
     Indication: CROHN'S DISEASE
  27. FLAGYL [Suspect]
     Indication: CLOSTRIDIUM DIFFICILE COLITIS
     Dosage: 500 MG, TID
     Route: 042
     Dates: start: 20111101, end: 20111111
  28. ENTOCORT EC [Concomitant]
     Indication: CROHN'S DISEASE
     Dosage: 9 MG, QD
     Route: 048
  29. CELEXA [Concomitant]
     Indication: DEPRESSION
     Dosage: 20 MG, QD
     Route: 048

REACTIONS (30)
  - OESOPHAGEAL CANDIDIASIS [None]
  - MOUTH ULCERATION [None]
  - TONGUE ULCERATION [None]
  - BONE MARROW TOXICITY [None]
  - CANDIDIASIS [None]
  - ODYNOPHAGIA [None]
  - BLOOD PH DECREASED [None]
  - PULMONARY OEDEMA [None]
  - GASTROINTESTINAL HAEMORRHAGE [None]
  - ATRIAL FIBRILLATION [None]
  - HYPERKALAEMIA [None]
  - WHEEZING [None]
  - BREATH SOUNDS ABNORMAL [None]
  - HAEMODIALYSIS [None]
  - RENAL FAILURE [None]
  - PSEUDOMEMBRANOUS COLITIS [None]
  - LARYNGEAL ULCERATION [None]
  - OEDEMA PERIPHERAL [None]
  - FUNGAL INFECTION [None]
  - PANCYTOPENIA [None]
  - ENTEROCOLITIS HAEMORRHAGIC [None]
  - HERPES OESOPHAGITIS [None]
  - TACHYCARDIA [None]
  - CONTUSION [None]
  - RESPIRATORY FAILURE [None]
  - PLATELET COUNT DECREASED [None]
  - THROMBOCYTOPENIA [None]
  - LEUKOPENIA [None]
  - ANAEMIA [None]
  - RECTAL HAEMORRHAGE [None]
